FAERS Safety Report 10053333 (Version 1)
Quarter: 2014Q2

REPORT INFORMATION
  Report Type: Report from Study
  Country: US (occurrence: US)
  Receive Date: 20140402
  Receipt Date: 20140402
  Transmission Date: 20141212
  Serious: Yes (Hospitalization, Disabling, Other)
  Sender: FDA-Public Use
  Company Number: PHEH2014US006244

PATIENT
  Sex: Female

DRUGS (2)
  1. CLOZARIL [Suspect]
     Indication: BIPOLAR DISORDER
     Dosage: UNK
  2. CLOZARIL [Suspect]
     Indication: SCHIZOAFFECTIVE DISORDER

REACTIONS (5)
  - Brain injury [Unknown]
  - Dysgraphia [Unknown]
  - Amnesia [Unknown]
  - Bipolar disorder [Unknown]
  - Bronchitis chronic [Unknown]
